FAERS Safety Report 7540564-2 (Version None)
Quarter: 2011Q2

REPORT INFORMATION
  Report Type: 
  Country: None (occurrence: None)
  Receive Date: 20110610
  Receipt Date: 20110603
  Transmission Date: 20111010
  Serious: Yes (Hospitalization)
  Sender: FDA-Public Use
  Company Number: B0724900A

PATIENT
  Age: 57 Year
  Sex: Male

DRUGS (2)
  1. AVANDAMET [Suspect]
     Route: 048
     Dates: start: 20060823, end: 20070105
  2. AVANDIA [Suspect]
     Route: 048
     Dates: start: 20001002, end: 20080601

REACTIONS (1)
  - LACUNAR INFARCTION [None]
